FAERS Safety Report 11185106 (Version 2)
Quarter: 2015Q3

REPORT INFORMATION
  Report Type: Spontaneous
  Country: US (occurrence: US)
  Receive Date: 20150612
  Receipt Date: 20150810
  Transmission Date: 20151125
  Serious: Yes (Other)
  Sender: FDA-Public Use
  Company Number: US-PFIZER INC-2015196439

PATIENT
  Age: 75 Year
  Sex: Female

DRUGS (2)
  1. AZATHIOPRINE. [Concomitant]
     Active Substance: AZATHIOPRINE
     Dosage: 50 MG, 2X/DAY
     Dates: start: 2005
  2. RAPAMUNE [Suspect]
     Active Substance: SIROLIMUS
     Indication: LIVER TRANSPLANT
     Dosage: 1 MG, 2X/DAY
     Dates: start: 2005

REACTIONS (2)
  - Product use issue [Unknown]
  - Neoplasm malignant [Recovered/Resolved]
